FAERS Safety Report 4421425-4 (Version None)
Quarter: 2004Q3

REPORT INFORMATION
  Report Type: 
  Country: None (occurrence: None)
  Receive Date: 20040709
  Receipt Date: 20040421
  Transmission Date: 20050211
  Serious: No
  Sender: FDA-Public Use
  Company Number: 2004S1000082

PATIENT
  Age: 71 Year
  Sex: Male

DRUGS (5)
  1. CUBICIN [Suspect]
     Indication: BACTERAEMIA
     Dosage: 6 MG/KG, QD, IV
     Route: 042
     Dates: start: 20040405, end: 20040421
  2. CUBICIN [Suspect]
     Indication: IMPLANT SITE INFECTION
     Dosage: 6 MG/KG, QD, IV
     Route: 042
     Dates: start: 20040405, end: 20040421
  3. CUBICIN [Suspect]
     Indication: STAPHYLOCOCCAL INFECTION
     Dosage: 6 MG/KG, QD, IV
     Route: 042
     Dates: start: 20040405, end: 20040421
  4. VANCOMYCIN [Concomitant]
  5. RIFAMPIN [Concomitant]

REACTIONS (2)
  - BLOOD CREATINE PHOSPHOKINASE INCREASED [None]
  - MUSCULAR WEAKNESS [None]
